FAERS Safety Report 22274111 (Version 2)
Quarter: 2023Q2

REPORT INFORMATION
  Report Type: Other
  Country: GB (occurrence: GB)
  Receive Date: 20230502
  Receipt Date: 20230528
  Transmission Date: 20230721
  Serious: Yes (Hospitalization, Other)
  Sender: FDA-Public Use
  Company Number: None

PATIENT
  Age: 13 Year
  Sex: Male
  Weight: 36 kg

DRUGS (4)
  1. ETHOSUXIMIDE [Suspect]
     Active Substance: ETHOSUXIMIDE
     Indication: Epilepsy
     Dosage: 500 MILLIGRAM, BID, CAPSULE
     Route: 065
     Dates: start: 20230124, end: 20230303
  2. ETHOSUXIMIDE [Suspect]
     Active Substance: ETHOSUXIMIDE
     Dosage: 1000 MILLIGRAM, QD, CAPSULE
     Route: 065
     Dates: start: 20230124, end: 20230303
  3. CLARITHROMYCIN [Suspect]
     Active Substance: CLARITHROMYCIN
     Indication: Adverse drug reaction
     Dosage: UNK
     Route: 065
     Dates: start: 20230227, end: 20230311
  4. CLARITHROMYCIN [Suspect]
     Active Substance: CLARITHROMYCIN
     Indication: Balanoposthitis

REACTIONS (7)
  - Pain [Recovered/Resolved]
  - Dysuria [Unknown]
  - Somatic hallucination [Recovered/Resolved]
  - Psychotic disorder [Recovered/Resolved]
  - Testicular pain [Unknown]
  - Penile pain [Unknown]
  - Off label use [Unknown]

NARRATIVE: CASE EVENT DATE: 20230226
